FAERS Safety Report 8481213-9 (Version None)
Quarter: 2012Q2

REPORT INFORMATION
  Report Type: 
  Country: None (occurrence: None)
  Receive Date: 20120625
  Receipt Date: 20120612
  Transmission Date: 20120825
  Serious: Yes (Hospitalization)
  Sender: FDA-Public Use
  Company Number: FK201201646

PATIENT
  Age: 3 Year
  Sex: Female

DRUGS (5)
  1. ANVIL (PHENIRAMINE MALEATE) [Concomitant]
  2. ULTIVA [Concomitant]
  3. ROCURONIUM BROMIDE [Concomitant]
  4. PROPOFOL [Suspect]
     Indication: INDUCTION OF ANAESTHESIA
     Dosage: INTRAVENOUS (NOT OTHERWISE SPECIFIED)
     Route: 042
     Dates: start: 20120607, end: 20120607
  5. ERYTHROMYCIN [Concomitant]

REACTIONS (2)
  - PYREXIA [None]
  - HAEMATEMESIS [None]
